FAERS Safety Report 24064225 (Version 1)
Quarter: 2024Q3

REPORT INFORMATION
  Report Type: Spontaneous
  Country: US (occurrence: US)
  Receive Date: 20240709
  Receipt Date: 20240709
  Transmission Date: 20241017
  Serious: No
  Sender: BIOGEN
  Company Number: US-BIOGEN-2024BI01272286

PATIENT
  Sex: Female

DRUGS (11)
  1. TYSABRI [Suspect]
     Active Substance: NATALIZUMAB
     Indication: Product used for unknown indication
     Dosage: INFUSE 300 MG (1 VIAL) INTRAVENOUSLY EVERY 4 WEEKS
     Route: 050
  2. FOLIC ACID [Concomitant]
     Active Substance: FOLIC ACID
     Route: 050
  3. ROSUVASTATIN CALCIUM [Concomitant]
     Active Substance: ROSUVASTATIN CALCIUM
     Route: 050
  4. FLEXERIL [Concomitant]
     Active Substance: CYCLOBENZAPRINE HYDROCHLORIDE
     Route: 050
  5. ACETAMINOPHEN [Concomitant]
     Active Substance: ACETAMINOPHEN
     Route: 050
  6. VITAMIN D3 [Concomitant]
     Active Substance: CHOLECALCIFEROL
     Route: 050
  7. MELATONIN [Concomitant]
     Active Substance: MELATONIN
     Route: 050
  8. NIFEDIPINE [Concomitant]
     Active Substance: NIFEDIPINE
     Route: 050
  9. IRON [Concomitant]
     Active Substance: IRON
     Route: 050
  10. VITAMIN C [Concomitant]
     Active Substance: ASCORBIC ACID
     Route: 050
  11. ZOLOFT [Concomitant]
     Active Substance: SERTRALINE HYDROCHLORIDE
     Route: 050

REACTIONS (2)
  - Loss of therapeutic response [Unknown]
  - Multiple sclerosis relapse [Unknown]
